FAERS Safety Report 20974599 (Version 1)
Quarter: 2022Q2

REPORT INFORMATION
  Report Type: Spontaneous
  Country: US (occurrence: None)
  Receive Date: 20220616
  Receipt Date: 20220616
  Transmission Date: 20220721
  Serious: No
  Sender: FDA-Public Use
  Company Number: None

PATIENT
  Age: 66 Year
  Sex: Male

DRUGS (1)
  1. CAPECITABINE [Suspect]
     Active Substance: CAPECITABINE
     Dosage: FREQUENCY : TWICE A DAY;?
     Route: 048
     Dates: start: 202106

REACTIONS (4)
  - Jaw disorder [None]
  - Osteomyelitis [None]
  - Mouth swelling [None]
  - Oral infection [None]

NARRATIVE: CASE EVENT DATE: 20220601
